FAERS Safety Report 5719740-7 (Version None)
Quarter: 2008Q2

REPORT INFORMATION
  Report Type: 
  Country: None (occurrence: None)
  Receive Date: 20080423
  Receipt Date: 20070327
  Transmission Date: 20081010
  Serious: Yes (Death)
  Sender: FDA-Public Use
  Company Number: 238330

PATIENT
  Age: 78 Year
  Sex: Female

DRUGS (14)
  1. AVASTIN [Suspect]
     Indication: COLON CANCER
     Dosage: 300 MG
     Dates: start: 20060815
  2. FLUOROURACIL [Concomitant]
  3. OXALIPLATIN [Concomitant]
  4. LEUCOVORIN CALCIUM [Concomitant]
  5. COMPAZINE [Concomitant]
  6. ACTONEL [Concomitant]
  7. TOPROL-XL [Concomitant]
  8. LISINOPRIL [Concomitant]
  9. ARANESP [Concomitant]
  10. CALCIUM GLUCONATE [Concomitant]
  11. DECADRON [Concomitant]
  12. KYTRIL [Concomitant]
  13. ATIVAN [Concomitant]
  14. MAGNESIUM SULFATE [Concomitant]

REACTIONS (1)
  - CEREBRAL HAEMORRHAGE [None]
